FAERS Safety Report 19700255 (Version 1)
Quarter: 2021Q3

REPORT INFORMATION
  Report Type: Spontaneous
  Country: JP (occurrence: JP)
  Receive Date: 20210813
  Receipt Date: 20210813
  Transmission Date: 20211014
  Serious: Yes (Hospitalization)
  Sender: FDA-Public Use
  Company Number: JP-JNJFOC-A-CH2018-177870

PATIENT
  Age: 79 Year
  Sex: Female
  Weight: 49.1 kg

DRUGS (10)
  1. UPTRAVI [Suspect]
     Active Substance: SELEXIPAG
     Dosage: 0.2 MG, QD
     Route: 048
     Dates: start: 20190524, end: 20190718
  2. FUROSEMIDE. [Concomitant]
     Active Substance: FUROSEMIDE
     Dosage: 10 MG, QD
     Route: 048
     Dates: end: 20190718
  3. RYTHMODAN [DISOPYRAMIDE PHOSPHATE] [Concomitant]
     Active Substance: DISOPYRAMIDE PHOSPHATE
     Dates: start: 20210212
  4. BISOPROLOL FUMARATE. [Concomitant]
     Active Substance: BISOPROLOL FUMARATE
     Dates: start: 20210520
  5. UPTRAVI [Suspect]
     Active Substance: SELEXIPAG
     Indication: PULMONARY ARTERIAL HYPERTENSION
     Dosage: 0.2 MG, BID
     Route: 048
     Dates: start: 20190719
  6. LANSOPRAZOLE. [Concomitant]
     Active Substance: LANSOPRAZOLE
     Dates: start: 20200619
  7. LUPRAC [Concomitant]
     Active Substance: TORSEMIDE
     Dates: start: 20200212
  8. LIXIANA [Concomitant]
     Active Substance: EDOXABAN TOSYLATE
     Dates: start: 20210219
  9. OPSUMIT [Suspect]
     Active Substance: MACITENTAN
     Indication: PULMONARY ARTERIAL HYPERTENSION
     Dosage: 10 MG, QD
     Route: 048
     Dates: start: 20180713
  10. FUROSEMIDE. [Concomitant]
     Active Substance: FUROSEMIDE
     Dosage: 20 MG, QD
     Dates: start: 20190719, end: 20210211

REACTIONS (2)
  - Psoriasis [Recovering/Resolving]
  - Atrial fibrillation [Recovered/Resolved]

NARRATIVE: CASE EVENT DATE: 20180720
